FAERS Safety Report 7892912-1 (Version None)
Quarter: 2011Q4

REPORT INFORMATION
  Report Type: 
  Country: None (occurrence: None)
  Receive Date: 20111104
  Receipt Date: 20111027
  Transmission Date: 20120403
  Serious: Yes (Hospitalization)
  Sender: FDA-Public Use
  Company Number: CH-PFIZER INC-2011268272

PATIENT
  Age: 69 Year
  Sex: Male

DRUGS (5)
  1. OXAZEPAM [Concomitant]
     Dosage: UNK
     Route: 048
  2. INDERAL [Concomitant]
     Dosage: UNK
     Route: 048
  3. ATORVASTATIN CALCIUM [Concomitant]
     Dosage: UNK
  4. CANDESARTAN CILEXETIL [Concomitant]
     Dosage: UNK
  5. PANTOPRAZOLE SODIUM [Suspect]
     Indication: GASTROOESOPHAGEAL REFLUX DISEASE
     Dosage: 40 MG, 1X/DAY
     Route: 048
     Dates: end: 20110918

REACTIONS (5)
  - HEAD INJURY [None]
  - HYPOKALAEMIA [None]
  - SUBARACHNOID HAEMORRHAGE [None]
  - HYPOCALCAEMIA [None]
  - HYPOMAGNESAEMIA [None]
